FAERS Safety Report 5248659-3 (Version None)
Quarter: 2007Q1

REPORT INFORMATION
  Report Type: 
  Country: None (occurrence: None)
  Receive Date: 20070227
  Receipt Date: 20070227
  Transmission Date: 20070707
  Serious: Yes (Hospitalization)
  Sender: FDA-Public Use
  Company Number: None

PATIENT
  Sex: Male
  Weight: 107.9561 kg

DRUGS (2)
  1. TOPOTECAN 3 MG/M2 [Suspect]
     Indication: SMALL CELL LUNG CANCER STAGE UNSPECIFIED
     Dosage: 3MG/M2 D1,8,15 Q28 IV
     Route: 042
     Dates: start: 20070203
  2. PS-341 1.6MG/M2 [Suspect]
     Indication: SMALL CELL LUNG CANCER STAGE UNSPECIFIED
     Dosage: 1.6MG/M2 D 1,8,15 Q28 IV
     Route: 042
     Dates: start: 20070223

REACTIONS (1)
  - MENTAL STATUS CHANGES [None]
